FAERS Safety Report 5974237-4 (Version None)
Quarter: 2008Q4

REPORT INFORMATION
  Report Type: 
  Country: None (occurrence: None)
  Receive Date: 20081128
  Receipt Date: 20081119
  Transmission Date: 20090506
  Serious: Yes (Other)
  Sender: FDA-Public Use
  Company Number: GXKR2008TR11055

PATIENT
  Age: 8 Year
  Sex: Male
  Weight: 36 kg

DRUGS (1)
  1. BENZYLPENICILLIN (NGX) (BENZYLPENICILLIN) UNKNOWN [Suspect]
     Indication: UPPER RESPIRATORY TRACT INFECTION
     Dosage: , INTRAMUSCULAR
     Route: 030

REACTIONS (15)
  - ALLODYNIA [None]
  - GAIT DISTURBANCE [None]
  - HYPOAESTHESIA [None]
  - INJECTION SITE PAIN [None]
  - INSOMNIA [None]
  - INTERVERTEBRAL DISC DISORDER [None]
  - MOVEMENT DISORDER [None]
  - NEURALGIA [None]
  - PAIN [None]
  - PAIN IN EXTREMITY [None]
  - PARAESTHESIA [None]
  - PERIPHERAL NERVE LESION [None]
  - PERONEAL NERVE PALSY [None]
  - SCIATIC NERVE INJURY [None]
  - SENSORY LOSS [None]
